FAERS Safety Report 4436537-9 (Version None)
Quarter: 2004Q3

REPORT INFORMATION
  Report Type: 
  Country: None (occurrence: None)
  Receive Date: 20040830
  Receipt Date: 20040616
  Transmission Date: 20050211
  Serious: No
  Sender: FDA-Public Use
  Company Number: US-BRISTOL-MYERS SQUIBB COMPANY-12617718

PATIENT
  Weight: 66 kg

DRUGS (5)
  1. ABILIFY [Suspect]
     Indication: SELF INJURIOUS BEHAVIOUR
     Route: 048
  2. ABILIFY [Suspect]
     Indication: AGITATION
     Route: 048
  3. ATIVAN [Concomitant]
  4. MULTIVITAMIN [Concomitant]
  5. MAALOX [Concomitant]

REACTIONS (3)
  - AGITATION [None]
  - DYSKINESIA [None]
  - TREMOR [None]
